FAERS Safety Report 7533435-9 (Version None)
Quarter: 2011Q2

REPORT INFORMATION
  Report Type: 
  Country: None (occurrence: None)
  Receive Date: 20110608
  Receipt Date: 20051130
  Transmission Date: 20111010
  Serious: Yes (Hospitalization)
  Sender: FDA-Public Use
  Company Number: PHMT2005CA00563

PATIENT
  Sex: Female

DRUGS (8)
  1. ARTANE [Concomitant]
  2. LEVOTHYROXINE SODIUM [Concomitant]
  3. SERTRALINE HYDROCHLORIDE [Concomitant]
  4. SLOW-K [Concomitant]
  5. HALDOL [Concomitant]
     Dosage: UNK
  6. VALPROATE SODIUM [Concomitant]
  7. CLOZAPINE [Suspect]
     Dates: start: 19971202, end: 20051103
  8. LASIX [Concomitant]

REACTIONS (2)
  - CARDIAC FAILURE [None]
  - PNEUMONIA [None]
